FAERS Safety Report 8429661-7 (Version None)
Quarter: 2012Q2

REPORT INFORMATION
  Report Type: 
  Country: None (occurrence: None)
  Receive Date: 20120612
  Receipt Date: 20120605
  Transmission Date: 20120825
  Serious: Yes (Other)
  Sender: FDA-Public Use
  Company Number: US-PFIZER INC-2012136275

PATIENT
  Age: 13 Month
  Sex: Male

DRUGS (1)
  1. AZITHROMYCIN [Suspect]
     Dosage: UNK

REACTIONS (3)
  - TACHYCARDIA [None]
  - EOSINOPHILIC MYOCARDITIS [None]
  - ATRIOVENTRICULAR BLOCK COMPLETE [None]
